FAERS Safety Report 15704533 (Version 1)
Quarter: 2018Q4

REPORT INFORMATION
  Report Type: Spontaneous
  Country: US (occurrence: US)
  Receive Date: 20181210
  Receipt Date: 20181210
  Transmission Date: 20190205
  Serious: No
  Sender: FDA-Public Use
  Company Number: US-PFIZER INC-2018504622

PATIENT
  Age: 41 Year
  Sex: Male

DRUGS (1)
  1. SOMAVERT [Suspect]
     Active Substance: PEGVISOMANT
     Dosage: 10 MG, DAILY

REACTIONS (14)
  - Insulin-like growth factor increased [Unknown]
  - Blood glucose increased [Unknown]
  - Blood follicle stimulating hormone decreased [Unknown]
  - Blood testosterone free decreased [Unknown]
  - Thyroxine free decreased [Unknown]
  - Blood luteinising hormone decreased [Unknown]
  - Blood thyroid stimulating hormone decreased [Unknown]
  - Red blood cell count decreased [Unknown]
  - Blood testosterone decreased [Unknown]
  - Bone density abnormal [Unknown]
  - Glycosylated haemoglobin increased [Unknown]
  - Haemoglobin decreased [Unknown]
  - Blood bilirubin increased [Unknown]
  - Haematocrit decreased [Unknown]

NARRATIVE: CASE EVENT DATE: 20181016
